FAERS Safety Report 20768484 (Version 2)
Quarter: 2022Q2

REPORT INFORMATION
  Report Type: Spontaneous
  Country: CH (occurrence: CH)
  Receive Date: 20220429
  Receipt Date: 20220504
  Transmission Date: 20220720
  Serious: Yes (Hospitalization, Other)
  Sender: FDA-Public Use
  Company Number: CH-ASTELLAS-2022US015777

PATIENT
  Sex: Male

DRUGS (4)
  1. PADCEV [Suspect]
     Active Substance: ENFORTUMAB VEDOTIN-EJFV
     Indication: Product used for unknown indication
     Dosage: UNK UNK, UNKNOWN FREQ.
     Route: 065
     Dates: start: 20220407, end: 20220421
  2. TRESIBA [Concomitant]
     Active Substance: INSULIN DEGLUDEC
     Indication: Type 2 diabetes mellitus
     Dosage: 12 IU, UNKNOWN FREQ. (12 U TRESIBA)
     Route: 065
  3. TRESIBA [Concomitant]
     Active Substance: INSULIN DEGLUDEC
     Dosage: 50 IU, UNKNOWN FREQ. (CURRENT SUCCESSIVE INCREASE TO 100 IU TRESIBA DIVIDED INTO TWO DOSES)
     Route: 065
  4. OZEMPIC [Concomitant]
     Active Substance: SEMAGLUTIDE
     Indication: Type 2 diabetes mellitus
     Dosage: 1 MG, UNKNOWN FREQ. (OZEMPIC 1 MG/WEEK)
     Route: 065

REACTIONS (2)
  - Insulin resistant diabetes [Not Recovered/Not Resolved]
  - Infection [Not Recovered/Not Resolved]
